FAERS Safety Report 7337820 (Version 6)
Quarter: 2013Q4

REPORT INFORMATION
  Report Type: Report from Study
  Country: US (occurrence: US)
  Receive Date: 20100315
  Receipt Date: 20131105
  Transmission Date: 20140711
  Serious: Yes (Hospitalization)
  Sender: FDA-Public Use
  Company Number: US-009507513-2010SP014569

PATIENT
  Age: 53 Year
  Sex: Female
  Weight: 68.27 kg

DRUGS (7)
  1. PEGINTERFERON ALFA-2B [Suspect]
     Indication: HEPATITIS C
     Dosage: 120 MCG, QW
     Route: 058
     Dates: start: 20100209, end: 20100308
  2. RIBAVIRIN [Suspect]
     Indication: HEPATITIS C
     Dosage: 1000 MG, QD
     Route: 048
     Dates: start: 20100209, end: 20100302
  3. METOPROLOL [Concomitant]
     Indication: HYPERTENSION
     Dosage: 100 MG, BID
     Route: 048
     Dates: start: 20080902
  4. ASCORBIC ACID (+) FOLIC ACID (+) VITAMIN B COMPLEX [Concomitant]
     Indication: VITAMIN SUPPLEMENTATION
     Dosage: STROVITE ADVANCE
     Route: 048
     Dates: start: 20080908
  5. LIPITOR [Concomitant]
     Indication: DYSLIPIDAEMIA
     Dosage: 40 MG, HS
     Route: 048
     Dates: start: 20080318
  6. SYNTHROID [Concomitant]
     Indication: THYROID DISORDER
     Dosage: 75 ?G, QD
     Route: 048
     Dates: start: 20090811
  7. ACIPHEX [Concomitant]
     Indication: PRODUCT USED FOR UNKNOWN INDICATION
     Dosage: 20 MG, QD
     Route: 048
     Dates: start: 20080318

REACTIONS (1)
  - Anaemia [Recovered/Resolved]
